FAERS Safety Report 5610227-9 (Version None)
Quarter: 2008Q1

REPORT INFORMATION
  Report Type: 
  Country: None (occurrence: None)
  Receive Date: 20080131
  Receipt Date: 20080125
  Transmission Date: 20080703
  Serious: Yes (Death, Other)
  Sender: FDA-Public Use
  Company Number: FR-GENENTECH-255097

PATIENT
  Age: 56 Year
  Sex: Female

DRUGS (5)
  1. RITUXAN [Suspect]
     Indication: B-CELL LYMPHOMA
     Dosage: 375 MG/M2, Q2W
     Route: 042
  2. GEMCITABINE [Suspect]
     Indication: B-CELL LYMPHOMA
     Dosage: 1000 MG/M2, Q2W
     Route: 042
  3. OXALIPLATIN [Suspect]
     Indication: B-CELL LYMPHOMA
     Dosage: 100 MG/M2, Q2W
     Route: 042
  4. LEVOTHYROXINE SODIUM [Concomitant]
     Indication: DRUG USE FOR UNKNOWN INDICATION
  5. HYDROCORTISONE [Concomitant]
     Indication: DRUG USE FOR UNKNOWN INDICATION

REACTIONS (1)
  - HAEMOLYTIC URAEMIC SYNDROME [None]
